FAERS Safety Report 9330192 (Version 1)
Quarter: 2013Q2

REPORT INFORMATION
  Report Type: Spontaneous
  Country: CO (occurrence: CO)
  Receive Date: 20130604
  Receipt Date: 20130604
  Transmission Date: 20140414
  Serious: Yes (Death, Hospitalization)
  Sender: FDA-Public Use
  Company Number: CO-ASTRAZENECA-2013SE40039

PATIENT
  Age: 52 Day
  Sex: Female
  Weight: 4 kg

DRUGS (3)
  1. SYNAGIS [Suspect]
     Indication: BRONCHOPULMONARY DYSPLASIA
     Route: 030
     Dates: start: 20130323, end: 20130520
  2. ACETAMINOPHEN [Concomitant]
  3. SALBUTAMOL [Concomitant]

REACTIONS (2)
  - Cough [Fatal]
  - Cardio-respiratory arrest [Fatal]
